FAERS Safety Report 21343796 (Version 1)
Quarter: 2022Q3

REPORT INFORMATION
  Report Type: Spontaneous
  Country: US (occurrence: US)
  Receive Date: 20220916
  Receipt Date: 20220916
  Transmission Date: 20221026
  Serious: Yes (Other)
  Sender: FDA-Public Use
  Company Number: US-ANIPHARMA-2022-US-022272

PATIENT
  Age: 74 Year
  Sex: Female

DRUGS (26)
  1. CORTICOTROPIN [Suspect]
     Active Substance: CORTICOTROPIN
     Indication: Psoriatic arthropathy
     Dosage: INJECT 80 UNITS (1ML) SUBCUTANEOUSLY TWICE WEEKLY /  ONCE WEEKLY
     Route: 058
  2. LASIX [Concomitant]
     Active Substance: FUROSEMIDE
     Route: 065
  3. ACETAMINOPHEN\HYDROCODONE [Concomitant]
     Active Substance: ACETAMINOPHEN\HYDROCODONE
     Route: 065
  4. LEVOTHYROXINE SODIUM [Concomitant]
     Active Substance: LEVOTHYROXINE SODIUM
     Route: 065
  5. METHOTREXATE [Concomitant]
     Active Substance: METHOTREXATE
     Route: 065
  6. PRILOSEC [Concomitant]
     Active Substance: OMEPRAZOLE MAGNESIUM
     Route: 065
  7. ZOFRAN [Concomitant]
     Active Substance: ONDANSETRON HYDROCHLORIDE
     Route: 065
  8. POTASSIUM CHLORIDE [Concomitant]
     Active Substance: POTASSIUM CHLORIDE
     Route: 065
  9. LYRICA [Concomitant]
     Active Substance: PREGABALIN
     Route: 065
  10. MAXZIDE [Concomitant]
     Active Substance: HYDROCHLOROTHIAZIDE\TRIAMTERENE
     Route: 065
  11. ZOLEDRONIC ACID [Concomitant]
     Active Substance: ZOLEDRONIC ACID
     Route: 065
  12. ASPIRIN [Concomitant]
     Active Substance: ASPIRIN
     Route: 065
  13. ZINC [Concomitant]
     Active Substance: ZINC
     Route: 065
  14. QUERCETIN [Concomitant]
     Active Substance: QUERCETIN
     Route: 065
  15. ELDERBERRY ZINC LOZENGE/V [Concomitant]
     Route: 065
  16. DIETARY SUPPLEMENT\HERBALS\MILK THISTLE [Concomitant]
     Active Substance: DIETARY SUPPLEMENT\HERBALS\MILK THISTLE
     Route: 065
  17. VITAMIN C [Concomitant]
     Active Substance: ASCORBIC ACID
     Route: 065
  18. MAGNESIUM [Concomitant]
     Active Substance: MAGNESIUM
     Route: 065
  19. BUTRANS [Concomitant]
     Active Substance: BUPRENORPHINE
     Route: 065
  20. ATORVASTATIN CALCIUM [Concomitant]
     Active Substance: ATORVASTATIN CALCIUM
     Route: 065
  21. DANTROLENE SODIUM [Concomitant]
     Active Substance: DANTROLENE SODIUM
     Route: 065
  22. DICLOFENAC SODIUM [Concomitant]
     Active Substance: DICLOFENAC SODIUM
     Route: 065
  23. DULOXETINE HYDROCHLORIDE [Concomitant]
     Active Substance: DULOXETINE HYDROCHLORIDE
     Route: 065
  24. VITAMIN D2 [Concomitant]
     Active Substance: ERGOCALCIFEROL
     Route: 065
  25. FLONASE [Concomitant]
     Active Substance: FLUTICASONE PROPIONATE
     Route: 065
  26. FOLIC ACID [Concomitant]
     Active Substance: FOLIC ACID
     Route: 065

REACTIONS (2)
  - Product dose omission issue [Recovered/Resolved]
  - Kidney infection [Unknown]

NARRATIVE: CASE EVENT DATE: 20220801
